FAERS Safety Report 5011915-8 (Version None)
Quarter: 2006Q2

REPORT INFORMATION
  Report Type: 
  Country: None (occurrence: None)
  Receive Date: 20060524
  Receipt Date: 20060524
  Transmission Date: 20061013
  Serious: Yes (Hospitalization)
  Sender: FDA-Public Use
  Company Number: None

PATIENT
  Sex: Male
  Weight: 97 kg

DRUGS (2)
  1. TERAZOSIN HCL [Suspect]
     Indication: BENIGN PROSTATIC HYPERPLASIA
     Dosage: 4 MG BEDTIME PO
     Route: 048
     Dates: start: 20040329
  2. TERAZOSIN HCL [Suspect]
     Indication: HYPERTENSION
     Dosage: 4 MG BEDTIME PO
     Route: 048
     Dates: start: 20040329

REACTIONS (3)
  - DIZZINESS [None]
  - FALL [None]
  - ILL-DEFINED DISORDER [None]
